FAERS Safety Report 9397601 (Version 1)
Quarter: 2013Q3

REPORT INFORMATION
  Report Type: Spontaneous
  Country: US (occurrence: US)
  Receive Date: 20130712
  Receipt Date: 20130712
  Transmission Date: 20140515
  Serious: Yes (Hospitalization)
  Sender: FDA-Public Use
  Company Number: US-B.I. PHARMACEUTICALS,INC./RIDGEFIELD-2013-BI-19831BP

PATIENT
  Sex: Female

DRUGS (3)
  1. PRADAXA [Suspect]
     Indication: ATRIAL FIBRILLATION
     Dosage: 300 MG
     Route: 048
     Dates: start: 2011
  2. FLECAINIDE [Concomitant]
     Route: 048
  3. METOPROLOL [Concomitant]
     Route: 048

REACTIONS (3)
  - Heart rate increased [Recovered/Resolved]
  - Contusion [Recovered/Resolved]
  - Dyspepsia [Recovered/Resolved]
